FAERS Safety Report 24830724 (Version 1)
Quarter: 2025Q1

REPORT INFORMATION
  Report Type: Spontaneous
  Country: SG (occurrence: SG)
  Receive Date: 20250110
  Receipt Date: 20250110
  Transmission Date: 20250408
  Serious: Yes (Hospitalization, Other)
  Sender: RANBAXY
  Company Number: SG-SUN PHARMACEUTICAL INDUSTRIES LTD-2024R1-488479

PATIENT
  Age: 8 Year
  Sex: Female

DRUGS (2)
  1. SULFAMETHOXAZOLE\TRIMETHOPRIM [Suspect]
     Active Substance: SULFAMETHOXAZOLE\TRIMETHOPRIM
     Indication: Salmonella bacteraemia
     Route: 065
  2. SULFAMETHOXAZOLE\TRIMETHOPRIM [Suspect]
     Active Substance: SULFAMETHOXAZOLE\TRIMETHOPRIM
     Indication: Osteomyelitis

REACTIONS (1)
  - Pulmonary toxicity [Recovering/Resolving]
